FAERS Safety Report 13610932 (Version 1)
Quarter: 2017Q2

REPORT INFORMATION
  Report Type: Report from Study
  Country: TH (occurrence: TH)
  Receive Date: 20170605
  Receipt Date: 20170605
  Transmission Date: 20170830
  Serious: Yes (Death, Other)
  Sender: FDA-Public Use
  Company Number: PHHY2017TH081576

PATIENT
  Sex: Male

DRUGS (1)
  1. GLIVEC [Suspect]
     Active Substance: IMATINIB MESYLATE
     Indication: GASTROINTESTINAL STROMAL TUMOUR
     Dosage: 800 MG, UNK
     Route: 065

REACTIONS (6)
  - Infection [Fatal]
  - Diffuse large B-cell lymphoma [Unknown]
  - Acute kidney injury [Unknown]
  - Second primary malignancy [Unknown]
  - Chronic kidney disease [Unknown]
  - Gastritis haemorrhagic [Unknown]
